FAERS Safety Report 20805212 (Version 1)
Quarter: 2022Q2

REPORT INFORMATION
  Report Type: Spontaneous
  Country: US (occurrence: US)
  Receive Date: 20220509
  Receipt Date: 20220509
  Transmission Date: 20220721
  Serious: Yes (Hospitalization, Other)
  Sender: FDA-Public Use
  Company Number: US-JNJFOC-20220508030

PATIENT
  Age: 71 Year
  Sex: Female
  Weight: 98.972 kg

DRUGS (4)
  1. XARELTO [Suspect]
     Active Substance: RIVAROXABAN
     Indication: Thrombosis
     Route: 048
     Dates: end: 201811
  2. XARELTO [Suspect]
     Active Substance: RIVAROXABAN
     Route: 048
     Dates: start: 202001
  3. TIROSINT [Concomitant]
     Active Substance: LEVOTHYROXINE SODIUM
     Indication: Hypothyroidism
     Dates: start: 2020
  4. GUANFACINE [Concomitant]
     Active Substance: GUANFACINE
     Indication: Hypertension
     Dates: start: 20220413

REACTIONS (16)
  - Pulmonary thrombosis [Unknown]
  - Intervertebral disc protrusion [Recovering/Resolving]
  - Vaginal haemorrhage [Unknown]
  - Dizziness [Unknown]
  - Headache [Unknown]
  - Asthenia [Unknown]
  - Walking aid user [Unknown]
  - Exostosis [Unknown]
  - Paraesthesia [Unknown]
  - Hypoaesthesia [Unknown]
  - Anger [Unknown]
  - Frustration tolerance decreased [Unknown]
  - Irritability [Unknown]
  - Urinary incontinence [Unknown]
  - Anal incontinence [Unknown]
  - Dehydration [Unknown]
